FAERS Safety Report 4483376-9 (Version None)
Quarter: 2004Q4

REPORT INFORMATION
  Report Type: 
  Country: None (occurrence: None)
  Receive Date: 20041020
  Receipt Date: 20041006
  Transmission Date: 20050328
  Serious: Yes (Other)
  Sender: FDA-Public Use
  Company Number: FR_040904692

PATIENT
  Age: 54 Year
  Sex: Female
  Weight: 51 kg

DRUGS (4)
  1. EVISTA [Suspect]
     Indication: OSTEOPOROSIS
     Dosage: 60 MG/1 DAY
     Dates: start: 20010512, end: 20040706
  2. ACTONEL [Concomitant]
  3. OROCAL (CALCIUM CARBONATE) [Concomitant]
  4. ATACAND [Concomitant]

REACTIONS (3)
  - CATARACT SUBCAPSULAR [None]
  - CONDITION AGGRAVATED [None]
  - MYOPIA [None]
